FAERS Safety Report 8361337-7 (Version None)
Quarter: 2012Q2

REPORT INFORMATION
  Report Type: 
  Country: None (occurrence: None)
  Receive Date: 20120515
  Receipt Date: 20120509
  Transmission Date: 20120825
  Serious: Yes (Other)
  Sender: FDA-Public Use
  Company Number: PHHY2012GB039886

PATIENT
  Age: 67 Year
  Sex: Female

DRUGS (9)
  1. CACIT VITAMINE D3 [Concomitant]
  2. ALENDRONIC ACID [Suspect]
  3. CITALOPRAM HYDROBROMIDE [Concomitant]
  4. ACETAMINOPHEN AND CODEINE PHOSPHATE [Concomitant]
  5. TEMAZEPAM [Concomitant]
  6. DURAGESIC-100 [Concomitant]
  7. FOLIC ACID [Concomitant]
  8. UNIPHYL [Concomitant]
  9. DIAZEPAM [Concomitant]

REACTIONS (1)
  - EPISTAXIS [None]
